FAERS Safety Report 15673496 (Version 6)
Quarter: 2019Q1

REPORT INFORMATION
  Report Type: Spontaneous
  Country: US (occurrence: US)
  Receive Date: 20181129
  Receipt Date: 20190128
  Transmission Date: 20190417
  Serious: Yes (Hospitalization)
  Sender: FDA-Public Use
  Company Number: US-ACTELION-A-US2018-182672

PATIENT
  Age: 37 Year
  Sex: Female
  Weight: 61.22 kg

DRUGS (3)
  1. OPSUMIT [Suspect]
     Active Substance: MACITENTAN
     Indication: PULMONARY ARTERIAL HYPERTENSION
     Dosage: 10 MG, QD
     Route: 048
  2. VELETRI [Suspect]
     Active Substance: EPOPROSTENOL
     Indication: PULMONARY ARTERIAL HYPERTENSION
     Dosage: 50 NG/KG, PER MIN
     Route: 042
  3. ADEMPAS [Concomitant]
     Active Substance: RIOCIGUAT

REACTIONS (13)
  - Diverticulitis [Unknown]
  - Large intestine perforation [Unknown]
  - Blood potassium increased [Unknown]
  - Diverticular perforation [Unknown]
  - Diagnostic procedure [Unknown]
  - Procedural complication [Unknown]
  - Colonic abscess [Unknown]
  - Stoma creation [Unknown]
  - Chest pain [Unknown]
  - Stoma site haemorrhage [Unknown]
  - Fluid overload [Unknown]
  - Colostomy [Unknown]
  - Abdominal pain [Unknown]
